FAERS Safety Report 7204249-4 (Version None)
Quarter: 2010Q4

REPORT INFORMATION
  Report Type: 
  Country: None (occurrence: None)
  Receive Date: 20101230
  Receipt Date: 20101228
  Transmission Date: 20110411
  Serious: Yes (Other)
  Sender: FDA-Public Use
  Company Number: US-PFIZER INC-2010180789

PATIENT
  Sex: Female
  Weight: 62.132 kg

DRUGS (2)
  1. PREMARIN [Suspect]
     Dosage: 0.625 MG, UNK
     Route: 048
  2. LEVOTHYROXINE [Concomitant]
     Dosage: 1.37 MG, UNK

REACTIONS (8)
  - ACNE [None]
  - ATROPHIC VULVOVAGINITIS [None]
  - DRUG INEFFECTIVE [None]
  - SWELLING FACE [None]
  - URINARY TRACT INFECTION [None]
  - VAGINAL HAEMORRHAGE [None]
  - VOMITING [None]
  - VULVOVAGINAL DRYNESS [None]
